FAERS Safety Report 20861713 (Version 1)
Quarter: 2022Q2

REPORT INFORMATION
  Report Type: Spontaneous
  Country: US (occurrence: None)
  Receive Date: 20220520
  Receipt Date: 20220520
  Transmission Date: 20220720
  Serious: Yes (Other)
  Sender: FDA-Public Use
  Company Number: None

PATIENT
  Age: 53 Year
  Sex: Male
  Weight: 87.75 kg

DRUGS (15)
  1. RISPERIDONE [Suspect]
     Active Substance: RISPERIDONE
     Indication: Autism spectrum disorder
     Dosage: OTHER QUANTITY : 1 TABLET(S);?FREQUENCY : TWICE A DAY;?
     Route: 048
     Dates: end: 20220503
  2. RISPERIDONE [Suspect]
     Active Substance: RISPERIDONE
     Indication: Depression
  3. LISINOPRIL [Concomitant]
  4. METOPROLOL [Concomitant]
  5. METFORMIN [Concomitant]
     Active Substance: METFORMIN HYDROCHLORIDE
  6. AMLODIPINE BEAYLATE [Concomitant]
  7. FENOFIBRATE [Concomitant]
  8. BENZTROPINE [Concomitant]
     Active Substance: BENZTROPINE
  9. FLUOXETINE [Concomitant]
  10. DIVALPROEX SODIUM DR [Concomitant]
     Active Substance: DIVALPROEX SODIUM
  11. LAMOTRIGINE [Concomitant]
     Active Substance: LAMOTRIGINE
  12. LEVETIRACETAM [Concomitant]
  13. QUETIAPINE [Concomitant]
  14. MAGNESIUM [Concomitant]
  15. VITAMIN D [Concomitant]
     Active Substance: VITAMIN D NOS

REACTIONS (4)
  - Pain in extremity [None]
  - Irritability [None]
  - Facial pain [None]
  - Product quality issue [None]

NARRATIVE: CASE EVENT DATE: 20220429
